FAERS Safety Report 5900453-3 (Version None)
Quarter: 2008Q3

REPORT INFORMATION
  Report Type: 
  Country: None (occurrence: None)
  Receive Date: 20080926
  Receipt Date: 20080918
  Transmission Date: 20090109
  Serious: Yes (Hospitalization)
  Sender: FDA-Public Use
  Company Number: DE-AMGEN-UK305084

PATIENT
  Sex: Male

DRUGS (6)
  1. PANITUMUMAB [Suspect]
     Indication: COLORECTAL CANCER
     Route: 042
     Dates: start: 20080305, end: 20080820
  2. IRINOTECAN HCL [Suspect]
     Indication: COLORECTAL CANCER
  3. FLUOROURACIL [Suspect]
     Indication: COLORECTAL CANCER
  4. OLMESARTAN MEDOXOMIL [Suspect]
  5. HYDROCHLOROTHIAZIDE [Suspect]
     Route: 048
  6. LEUCOVORIN CALCIUM [Concomitant]
     Indication: COLORECTAL CANCER

REACTIONS (1)
  - SUBARACHNOID HAEMORRHAGE [None]
